FAERS Safety Report 15253183 (Version 1)
Quarter: 2018Q3

REPORT INFORMATION
  Report Type: Spontaneous
  Country: CN (occurrence: CN)
  Receive Date: 20180807
  Receipt Date: 20180807
  Transmission Date: 20181010
  Serious: Yes (Hospitalization)
  Sender: FDA-Public Use
  Company Number: CN-009507513-1808CHN002074

PATIENT
  Age: 78 Year
  Sex: Male
  Weight: 90 kg

DRUGS (3)
  1. TIENAM [Suspect]
     Active Substance: CILASTATIN SODIUM\IMIPENEM
     Indication: CHOLECYSTITIS ACUTE
     Dosage: 2 DF, TID
     Route: 041
     Dates: start: 20180511, end: 20180514
  2. TIENAM [Suspect]
     Active Substance: CILASTATIN SODIUM\IMIPENEM
     Indication: LUNG INFECTION
  3. SODIUM CHLORIDE. [Suspect]
     Active Substance: SODIUM CHLORIDE
     Dosage: 200 ML, TID
     Route: 041
     Dates: start: 20180511, end: 20180514

REACTIONS (3)
  - Hyperhidrosis [Recovering/Resolving]
  - Confusional state [Recovering/Resolving]
  - Restlessness [Recovering/Resolving]

NARRATIVE: CASE EVENT DATE: 20180514
